FAERS Safety Report 20362410 (Version 1)
Quarter: 2022Q1

REPORT INFORMATION
  Report Type: Other
  Country: DE (occurrence: None)
  Receive Date: 20220121
  Receipt Date: 20220121
  Transmission Date: 20220424
  Serious: Yes (Other)
  Sender: FDA-Public Use
  Company Number: DE-ROCHE-3007367

PATIENT
  Age: 51 Year
  Sex: Male

DRUGS (1)
  1. BEVACIZUMAB [Suspect]
     Active Substance: BEVACIZUMAB
     Indication: Diabetic retinal oedema
     Dosage: 1 INTRAVITREAL INJECTION
     Route: 050

REACTIONS (3)
  - Retinopathy proliferative [Unknown]
  - Off label use [Unknown]
  - Off label use [Unknown]
